FAERS Safety Report 5258099-9 (Version None)
Quarter: 2007Q1

REPORT INFORMATION
  Report Type: 
  Country: None (occurrence: None)
  Receive Date: 20070302
  Receipt Date: 20070202
  Transmission Date: 20070707
  Serious: Yes (Death, Life-Threatening, Hospitalization)
  Sender: FDA-Public Use
  Company Number: ABSCA-07-0128

PATIENT
  Age: 50 Year
  Sex: Female

DRUGS (12)
  1. ABRAXANE [Suspect]
     Indication: BREAST CANCER METASTATIC
     Dosage: (190 MG, X 1 DOSE)
     Dates: start: 20070201, end: 20070201
  2. HERCEPTIN [Concomitant]
  3. SALBUTAMOL (SALBUTAMOL) [Concomitant]
  4. DIMENHYDRINATE [Concomitant]
  5. VALSARTAN [Concomitant]
  6. ACETAMINOPHEN [Concomitant]
  7. FERROUS FUMARATE [Concomitant]
  8. LEVOTHYROXINE SODIUM [Concomitant]
  9. MEPERIDINE HCL [Concomitant]
  10. DIPHENHYDRAMINE HCL [Concomitant]
  11. OXYCODONE HCL [Concomitant]
  12. PANTOPRAZOLE EC (PANTOPRAZOLE) [Concomitant]

REACTIONS (5)
  - HYPERSENSITIVITY [None]
  - OEDEMA [None]
  - PLEURAL EFFUSION [None]
  - PNEUMONIA [None]
  - RESPIRATORY DISORDER [None]
